FAERS Safety Report 5831650-3 (Version None)
Quarter: 2008Q3

REPORT INFORMATION
  Report Type: 
  Country: None (occurrence: None)
  Receive Date: 20080730
  Receipt Date: 20080716
  Transmission Date: 20090109
  Serious: Yes (Death)
  Sender: FDA-Public Use
  Company Number: 2008AL008633

PATIENT
  Age: 86 Year
  Sex: Male

DRUGS (2)
  1. DIGOXIN [Suspect]
     Indication: ARRHYTHMIA
     Dosage: 0.25MG QOD PO
     Route: 048
  2. WARFARIN SODIUM [Concomitant]

REACTIONS (2)
  - FALL [None]
  - HAEMATOMA [None]
